FAERS Safety Report 7943758-7 (Version None)
Quarter: 2011Q4

REPORT INFORMATION
  Report Type: 
  Country: None (occurrence: None)
  Receive Date: 20111128
  Receipt Date: 20111114
  Transmission Date: 20120403
  Serious: Yes (Hospitalization)
  Sender: FDA-Public Use
  Company Number: US-MYLANLABS-2011S1024038

PATIENT
  Age: 62 Year
  Sex: Female

DRUGS (3)
  1. TACROLIMUS [Suspect]
     Indication: LIVER TRANSPLANT
     Route: 065
  2. HYDROCODONE BITARTRATE + ACETAMINOPHEN [Interacting]
     Indication: MYALGIA
     Dosage: 0-2 TABLETS/DAY; INCREASED TO 6-8 TABLETS/DAY
  3. HYDROCODONE BITARTRATE + ACETAMINOPHEN [Interacting]
     Dosage: 6-8 TABLETS/DAY

REACTIONS (3)
  - DRUG INTERACTION [None]
  - PROGRESSIVE MULTIFOCAL LEUKOENCEPHALOPATHY [None]
  - DRUG LEVEL INCREASED [None]
